FAERS Safety Report 15907605 (Version 1)
Quarter: 2019Q1

REPORT INFORMATION
  Report Type: Spontaneous
  Country: US (occurrence: US)
  Receive Date: 20190204
  Receipt Date: 20190204
  Transmission Date: 20190417
  Serious: No
  Sender: FDA-Public Use
  Company Number: US-SA-2019SA029007

PATIENT
  Sex: Female

DRUGS (7)
  1. ZYRTEC [Concomitant]
     Active Substance: CETIRIZINE HYDROCHLORIDE
  2. COZAAR [Concomitant]
     Active Substance: LOSARTAN POTASSIUM
  3. VITAMIN B12 [HYDROXOCOBALAMIN] [Concomitant]
     Active Substance: HYDROXOCOBALAMIN
  4. LEXAPRO [Concomitant]
     Active Substance: ESCITALOPRAM OXALATE
     Dosage: 20 MG, QD
  5. INSULIN [Concomitant]
     Active Substance: INSULIN NOS
  6. TOPIRAMATE. [Concomitant]
     Active Substance: TOPIRAMATE
  7. CERDELGA [Suspect]
     Active Substance: ELIGLUSTAT
     Route: 048

REACTIONS (3)
  - Asthenia [Unknown]
  - Apathy [Unknown]
  - Depression [Unknown]
